FAERS Safety Report 8174848-4 (Version None)
Quarter: 2012Q1

REPORT INFORMATION
  Report Type: 
  Country: None (occurrence: None)
  Receive Date: 20120229
  Receipt Date: 20110124
  Transmission Date: 20120608
  Serious: No
  Sender: FDA-Public Use
  Company Number: US-GLAXOSMITHKLINE-A0909890A

PATIENT
  Sex: Male

DRUGS (1)
  1. VALACYCLOVIR [Suspect]
     Indication: ILL-DEFINED DISORDER
     Dosage: 500MG PER DAY
     Route: 048
     Dates: start: 20040101

REACTIONS (1)
  - ILL-DEFINED DISORDER [None]
